FAERS Safety Report 9190212 (Version 2)
Quarter: 2013Q2

REPORT INFORMATION
  Report Type: Spontaneous
  Country: US (occurrence: None)
  Receive Date: 20120703
  Receipt Date: 20121031
  Transmission Date: 20140414
  Serious: Yes (Hospitalization)
  Sender: FDA-Public Use
  Company Number: PHEH2012US007734

PATIENT
  Age: 36 Year
  Sex: Female
  Weight: 85.1 kg

DRUGS (2)
  1. GILENYA [Suspect]
     Indication: MULTIPLE SCLEROSIS
     Route: 048
     Dates: start: 20120406
  2. CONTRACEPTIVES NOS (NO INGREDIENTS/SUBSTANCES) [Concomitant]

REACTIONS (9)
  - Pulmonary congestion [None]
  - Fatigue [None]
  - Somnolence [None]
  - Chest pain [None]
  - Cough [None]
  - Nasopharyngitis [None]
  - Acute sinusitis [None]
  - Weight increased [None]
  - Blood pressure increased [None]
